FAERS Safety Report 5466914-9 (Version None)
Quarter: 2007Q3

REPORT INFORMATION
  Report Type: 
  Country: None (occurrence: None)
  Receive Date: 20070921
  Receipt Date: 20070921
  Transmission Date: 20080115
  Serious: Yes (Other)
  Sender: FDA-Public Use
  Company Number: None

PATIENT
  Age: 4 Year
  Sex: Male
  Weight: 15.4223 kg

DRUGS (2)
  1. SUDAFED CHILDREN NASAL DECONGEST   PFIZER [Suspect]
     Indication: NASAL CONGESTION
     Dosage: 1 TEASPOON  4-6 HRS  PO
     Route: 048
     Dates: start: 20070919, end: 20070920
  2. SUDAFED CHILDREN NASAL DECONGEST   PFIZER [Suspect]
     Indication: NASOPHARYNGITIS
     Dosage: 1 TEASPOON  4-6 HRS  PO
     Route: 048
     Dates: start: 20070919, end: 20070920

REACTIONS (2)
  - AGITATION [None]
  - INSOMNIA [None]
